FAERS Safety Report 19834874 (Version 2)
Quarter: 2021Q4

REPORT INFORMATION
  Report Type: Report from Study
  Country: None (occurrence: AR)
  Receive Date: 20210915
  Receipt Date: 20211018
  Transmission Date: 20220303
  Serious: Yes (Hospitalization)
  Sender: FDA-Public Use
  Company Number: AR-ABBVIE-21K-007-4079905-00

PATIENT
  Age: 81 Year
  Sex: Male

DRUGS (2)
  1. RINVOQ [Suspect]
     Active Substance: UPADACITINIB
     Indication: Rheumatoid arthritis
     Route: 048
     Dates: start: 20210415
  2. METHOTREXATE [Suspect]
     Active Substance: METHOTREXATE
     Indication: Product used for unknown indication
     Route: 065

REACTIONS (8)
  - Localised infection [Recovered/Resolved]
  - Arthritis [Unknown]
  - Peripheral swelling [Unknown]
  - Fungal skin infection [Not Recovered/Not Resolved]
  - Anaemia [Not Recovered/Not Resolved]
  - Oral herpes [Recovering/Resolving]
  - Toxicity to various agents [Recovering/Resolving]
  - Pyrexia [Unknown]

NARRATIVE: CASE EVENT DATE: 20210101
